FAERS Safety Report 7443582-8 (Version None)
Quarter: 2011Q2

REPORT INFORMATION
  Report Type: 
  Country: None (occurrence: None)
  Receive Date: 20110428
  Receipt Date: 20110428
  Transmission Date: 20111010
  Serious: Yes (Other)
  Sender: FDA-Public Use
  Company Number: JP-B.I. PHARMACEUTICALS,INC./RIDGEFIELD-2011-BP-11922NB

PATIENT
  Age: 68 Year
  Sex: Male

DRUGS (6)
  1. VERAPAMIL HCL [Concomitant]
     Dosage: 40 MG
     Route: 048
  2. REBAMIPIDE [Concomitant]
     Dosage: 100 MG
     Route: 048
  3. PRADAXA [Suspect]
     Indication: ATRIAL FIBRILLATION
     Dosage: 300 MG
     Route: 048
     Dates: start: 20110418
  4. GOODMIN [Concomitant]
     Dosage: 0.25 MG
     Route: 065
  5. CEPROBLOCK [Concomitant]
     Dosage: 200 MG
     Route: 048
  6. RAMITECT [Concomitant]
     Route: 065

REACTIONS (3)
  - HAEMOPTYSIS [None]
  - HOT FLUSH [None]
  - DECREASED APPETITE [None]
